FAERS Safety Report 25422152 (Version 1)
Quarter: 2025Q2

REPORT INFORMATION
  Report Type: Spontaneous
  Country: CN (occurrence: CN)
  Receive Date: 20250611
  Receipt Date: 20250611
  Transmission Date: 20250717
  Serious: Yes (Other)
  Sender: ROCHE
  Company Number: CN-BoehringerIngelheim-2025-BI-074414

PATIENT
  Age: 71 Year
  Sex: Female
  Weight: 74.0 kg

DRUGS (1)
  1. ALTEPLASE [Suspect]
     Active Substance: ALTEPLASE
     Indication: Thrombolysis
     Route: 042
     Dates: start: 20250526, end: 20250526

REACTIONS (4)
  - Cerebral haemorrhage [Recovering/Resolving]
  - Hyperhidrosis [Recovering/Resolving]
  - Hypoacusis [Recovering/Resolving]
  - Confusional state [Recovering/Resolving]

NARRATIVE: CASE EVENT DATE: 20250526
